FAERS Safety Report 8572159-6 (Version None)
Quarter: 2012Q3

REPORT INFORMATION
  Report Type: 
  Country: None (occurrence: None)
  Receive Date: 20120806
  Receipt Date: 20120802
  Transmission Date: 20120928
  Serious: Yes (Death)
  Sender: FDA-Public Use
  Company Number: JP-PFIZER INC-2012187602

PATIENT
  Age: 4 Decade
  Sex: Female
  Weight: 59 kg

DRUGS (5)
  1. MIRTAZAPINE [Suspect]
     Dosage: UNK
  2. ZOLOFT [Suspect]
     Dosage: UNK
  3. CHLORPROMAZINE [Suspect]
     Dosage: UNK
  4. ZOLPIDEM [Suspect]
     Dosage: UNK
  5. AMOXAPINE [Suspect]
     Dosage: UNK

REACTIONS (1)
  - TOXICITY TO VARIOUS AGENTS [None]
